FAERS Safety Report 4740760-3 (Version None)
Quarter: 2005Q3

REPORT INFORMATION
  Report Type: 
  Country: None (occurrence: None)
  Receive Date: 20050810
  Receipt Date: 20050810
  Transmission Date: 20060218
  Serious: Yes (Hospitalization)
  Sender: FDA-Public Use
  Company Number: None

PATIENT
  Age: 88 Year
  Sex: Male
  Weight: 64.3 kg

DRUGS (5)
  1. HYDROCHLOROTHIAZIDE [Suspect]
     Dosage: SEE IMAGE
     Dates: start: 20050224, end: 20050311
  2. HYDROCHLOROTHIAZIDE [Suspect]
     Dosage: SEE IMAGE
     Dates: start: 20050311, end: 20050422
  3. POTASSIUM CL [Concomitant]
  4. CLOTRIMAZOLE [Concomitant]
  5. FERROUS SULFATE TAB [Concomitant]

REACTIONS (2)
  - HYPOKALAEMIA [None]
  - ILEUS [None]
